FAERS Safety Report 12333138 (Version 1)
Quarter: 2016Q2

REPORT INFORMATION
  Report Type: Spontaneous
  Country: US (occurrence: US)
  Receive Date: 20160504
  Receipt Date: 20160504
  Transmission Date: 20160815
  Serious: No
  Sender: FDA-Public Use
  Company Number: US-ROCHE-1674247

PATIENT
  Sex: Male
  Weight: 98.97 kg

DRUGS (1)
  1. ESBRIET [Suspect]
     Active Substance: PIRFENIDONE
     Indication: IDIOPATHIC PULMONARY FIBROSIS
     Route: 048
     Dates: start: 20151015

REACTIONS (7)
  - Photosensitivity reaction [Unknown]
  - Blister [Unknown]
  - Rash pruritic [Unknown]
  - Pruritus [Unknown]
  - Weight decreased [Unknown]
  - Skin exfoliation [Unknown]
  - Sunburn [Unknown]
